FAERS Safety Report 23461100 (Version 1)
Quarter: 2024Q1

REPORT INFORMATION
  Report Type: Spontaneous
  Country: US (occurrence: US)
  Receive Date: 20240131
  Receipt Date: 20240131
  Transmission Date: 20240410
  Serious: Yes (Other)
  Sender: FDA-Public Use
  Company Number: US-AMGEN-USASP2024016203

PATIENT

DRUGS (1)
  1. BEVACIZUMAB [Suspect]
     Active Substance: BEVACIZUMAB
     Indication: Hepatocellular carcinoma
     Dosage: UNK
     Route: 065

REACTIONS (6)
  - Hepatocellular carcinoma [Unknown]
  - Haemorrhage [Unknown]
  - Off label use [Unknown]
  - Rash [Unknown]
  - Adverse event [Unknown]
  - Immune system disorder [Unknown]
